FAERS Safety Report 18969522 (Version 1)
Quarter: 2021Q1

REPORT INFORMATION
  Report Type: Spontaneous
  Country: US (occurrence: US)
  Receive Date: 20210304
  Receipt Date: 20210304
  Transmission Date: 20210420
  Serious: Yes (Death)
  Sender: FDA-Public Use
  Company Number: None

PATIENT
  Age: 72 Year
  Sex: Male

DRUGS (11)
  1. EZETIMIBE 10MG [Concomitant]
     Active Substance: EZETIMIBE
  2. VITAMIN D2 [Concomitant]
     Active Substance: ERGOCALCIFEROL
  3. BIKTARVY [Suspect]
     Active Substance: BICTEGRAVIR SODIUM\EMTRICITABINE\TENOFOVIR ALAFENAMIDE FUMARATE
     Indication: HIV INFECTION
     Route: 048
  4. PRAVASTATIN 10MG [Concomitant]
     Active Substance: PRAVASTATIN
  5. SELZENTRY 300MG [Concomitant]
  6. TOUJEO SOLOSTAR 300U/ML [Concomitant]
  7. LABETALOL 100MG [Concomitant]
  8. NIFEDIPINE 90MG XL [Concomitant]
  9. NEPHRO?VITE RX [Concomitant]
  10. CYANOCOBALAMIN 1000MCG [Concomitant]
  11. ASPIRIN 81MG [Concomitant]
     Active Substance: ASPIRIN

REACTIONS (2)
  - Metastasis [None]
  - Disease progression [None]

NARRATIVE: CASE EVENT DATE: 20210303
